FAERS Safety Report 10234883 (Version 3)
Quarter: 2014Q3

REPORT INFORMATION
  Report Type: Report from Study
  Country: AU (occurrence: AU)
  Receive Date: 20140613
  Receipt Date: 20140804
  Transmission Date: 20150326
  Serious: Yes (Hospitalization)
  Sender: FDA-Public Use
  Company Number: AU-US-EMD SERONO, INC.-7296884

PATIENT
  Age: 66 Year
  Sex: Male
  Weight: 92 kg

DRUGS (5)
  1. REBIF [Suspect]
     Active Substance: INTERFERON BETA-1A
     Indication: MULTIPLE SCLEROSIS
     Route: 058
     Dates: start: 1994
  2. MESASAL [Concomitant]
     Indication: COLITIS ULCERATIVE
     Route: 048
     Dates: start: 2007
  3. CELEBREX [Concomitant]
     Active Substance: CELECOXIB
     Indication: ARTHRITIS
     Route: 048
     Dates: start: 2009
  4. MICARDIS [Concomitant]
     Active Substance: TELMISARTAN
     Indication: BLOOD PRESSURE
     Dates: start: 2009
  5. METHOTREXATE [Concomitant]
     Active Substance: METHOTREXATE
     Indication: ARTHRITIS
     Dates: start: 2012

REACTIONS (5)
  - Prostatomegaly [Not Recovered/Not Resolved]
  - Orchitis [Recovered/Resolved]
  - Liver function test abnormal [Recovered/Resolved]
  - Gout [Recovering/Resolving]
  - Malaise [Recovered/Resolved]

NARRATIVE: CASE EVENT DATE: 20140520
